FAERS Safety Report 10036549 (Version 1)
Quarter: 2014Q1

REPORT INFORMATION
  Report Type: Report from Study
  Country: US (occurrence: US)
  Receive Date: 20140326
  Receipt Date: 20140326
  Transmission Date: 20141002
  Serious: Yes (Other)
  Sender: FDA-Public Use
  Company Number: US-ROCHE-1370104

PATIENT
  Age: 14 Year
  Sex: Female

DRUGS (7)
  1. XOLAIR [Suspect]
     Indication: ASTHMA
     Route: 065
     Dates: start: 20140306, end: 20140320
  2. ADVAIR HFA [Concomitant]
     Dosage: 2 PUFFS
     Route: 065
  3. LORATADINE [Concomitant]
     Route: 065
  4. SINGULAIR [Concomitant]
     Route: 065
  5. VENTOLIN HFA [Concomitant]
     Dosage: 2 PUFF Q4-6HR AS NEEDED
     Route: 065
  6. FLONASE [Concomitant]
     Dosage: SPRAYS EACH NOSTRIL
     Route: 065
  7. EPIPEN [Concomitant]
     Dosage: AS NEEDED
     Route: 065

REACTIONS (3)
  - Throat tightness [Recovered/Resolved]
  - Oropharyngeal pain [Unknown]
  - Conversion disorder [Unknown]
